FAERS Safety Report 8443289-4 (Version None)
Quarter: 2012Q2

REPORT INFORMATION
  Report Type: 
  Country: None (occurrence: None)
  Receive Date: 20120618
  Receipt Date: 20120606
  Transmission Date: 20120825
  Serious: Yes (Other)
  Sender: FDA-Public Use
  Company Number: CH-BRISTOL-MYERS SQUIBB COMPANY-16688038

PATIENT
  Age: 34 Year
  Sex: Female

DRUGS (2)
  1. EFAVIRENZ [Suspect]
  2. COMBIVIR [Suspect]

REACTIONS (1)
  - BONE MARROW TOXICITY [None]
